FAERS Safety Report 6278755-3 (Version None)
Quarter: 2009Q3

REPORT INFORMATION
  Report Type: 
  Country: None (occurrence: None)
  Receive Date: 20090721
  Receipt Date: 20040419
  Transmission Date: 20100115
  Serious: Yes (Hospitalization, Disabling)
  Sender: FDA-Public Use
  Company Number: 2009008619

PATIENT
  Age: 41 Year
  Sex: Female

DRUGS (3)
  1. PROVIGIL [Suspect]
     Indication: SOMNOLENCE
     Dosage: 200 MG (200 MG, 1 IN 1 D), ORAL
     Route: 048
     Dates: start: 20040301, end: 20040501
  2. ANTIDEPRESSANTS [Concomitant]
  3. DICLOFENAC SODIUM [Concomitant]

REACTIONS (1)
  - DRUG TOLERANCE [None]
